FAERS Safety Report 8433048-0 (Version None)
Quarter: 2012Q2

REPORT INFORMATION
  Report Type: 
  Country: None (occurrence: None)
  Receive Date: 20120613
  Receipt Date: 20120607
  Transmission Date: 20120825
  Serious: Yes (Other)
  Sender: FDA-Public Use
  Company Number: BE-ROCHE-1076961

PATIENT
  Sex: Male
  Weight: 99 kg

DRUGS (3)
  1. AVASTIN [Suspect]
     Indication: METASTATIC RENAL CELL CARCINOMA
     Dates: start: 20090416, end: 20110216
  2. ROFERON-A [Suspect]
     Indication: METASTATIC RENAL CELL CARCINOMA
     Dates: start: 20090416, end: 20090525
  3. BISOPROLOL FUMARATE [Concomitant]

REACTIONS (1)
  - PORTAL HYPERTENSION [None]
